FAERS Safety Report 15304870 (Version 1)
Quarter: 2018Q3

REPORT INFORMATION
  Report Type: Spontaneous
  Country: US (occurrence: US)
  Receive Date: 20180809
  Receipt Date: 20180809
  Transmission Date: 20181010
  Serious: No
  Sender: FDA-Public Use
  Company Number: None

PATIENT
  Age: 57 Year
  Sex: Male
  Weight: 103 kg

DRUGS (2)
  1. DULOXETINE. [Suspect]
     Active Substance: DULOXETINE
     Indication: PAIN
     Route: 048
     Dates: start: 20170901, end: 20180214
  2. DULOXETINE. [Suspect]
     Active Substance: DULOXETINE
     Indication: DEPRESSION

REACTIONS (10)
  - Agitation [None]
  - Thinking abnormal [None]
  - Mood altered [None]
  - Abnormal behaviour [None]
  - Bipolar disorder [None]
  - Loss of employment [None]
  - Irritability [None]
  - Confusional state [None]
  - Mania [None]
  - Anger [None]

NARRATIVE: CASE EVENT DATE: 20180214
